FAERS Safety Report 20505847 (Version 1)
Quarter: 2022Q1

REPORT INFORMATION
  Report Type: Spontaneous
  Country: US (occurrence: US)
  Receive Date: 20220223
  Receipt Date: 20220223
  Transmission Date: 20220423
  Serious: No
  Sender: FDA-Public Use
  Company Number: US-GLENMARK PHARMACEUTICALS-2021GMK069609

PATIENT
  Sex: Male

DRUGS (1)
  1. HYDROCHLOROTHIAZIDE\TELMISARTAN [Suspect]
     Active Substance: HYDROCHLOROTHIAZIDE\TELMISARTAN
     Indication: Product used for unknown indication
     Dosage: UNK
     Route: 048

REACTIONS (2)
  - Product administration error [Unknown]
  - Product physical issue [Unknown]

NARRATIVE: CASE EVENT DATE: 20210901
